FAERS Safety Report 13135876 (Version 1)
Quarter: 2017Q1

REPORT INFORMATION
  Report Type: Spontaneous
  Country: FR (occurrence: FR)
  Receive Date: 20170120
  Receipt Date: 20170120
  Transmission Date: 20170428
  Serious: Yes (Hospitalization, Other)
  Sender: FDA-Public Use
  Company Number: FR-NORTHSTAR HEALTHCARE HOLDINGS-FR-2017NSR000093

PATIENT
  Age: 33 Year
  Sex: Female

DRUGS (11)
  1. BACLOFEN. [Suspect]
     Active Substance: BACLOFEN
     Indication: ALCOHOLISM
     Dosage: 60 MG, QD
     Dates: start: 201403
  2. BACLOFEN. [Suspect]
     Active Substance: BACLOFEN
     Dosage: 270 MG, QD
     Dates: start: 201407
  3. ESCITALOPRAM [Suspect]
     Active Substance: ESCITALOPRAM OXALATE
     Indication: PRODUCT USED FOR UNKNOWN INDICATION
     Dosage: 10 MG, UNK
     Dates: start: 2014
  4. ESCITALOPRAM [Suspect]
     Active Substance: ESCITALOPRAM OXALATE
     Dosage: 20 MG, UNK
     Dates: start: 201408
  5. BACLOFEN. [Suspect]
     Active Substance: BACLOFEN
     Dosage: 210 MG, UNK
     Dates: start: 20150211
  6. ESCITALOPRAM [Suspect]
     Active Substance: ESCITALOPRAM OXALATE
     Dosage: DECREASED
     Dates: start: 2015
  7. BACLOFEN. [Suspect]
     Active Substance: BACLOFEN
     Dosage: 180 MG, UNK
     Dates: start: 20150216
  8. BACLOFEN. [Suspect]
     Active Substance: BACLOFEN
     Dosage: 150 MG, UNK
     Dates: start: 20150223
  9. BACLOFEN. [Suspect]
     Active Substance: BACLOFEN
     Dosage: GRADUAL INCREASE
     Dates: start: 2014
  10. BACLOFEN. [Suspect]
     Active Substance: BACLOFEN
     Dosage: 240 MG, UNK
     Dates: start: 20150206
  11. ESCITALOPRAM [Suspect]
     Active Substance: ESCITALOPRAM OXALATE
     Dosage: UNK
     Dates: end: 2015

REACTIONS (13)
  - Feeling abnormal [Recovered/Resolved]
  - Anxiety [Recovered/Resolved]
  - Depressive symptom [Recovered/Resolved]
  - Insomnia [Recovered/Resolved]
  - Agitation [Recovered/Resolved]
  - Grandiosity [Recovered/Resolved]
  - Psychomotor hyperactivity [Recovered/Resolved]
  - Mania [Recovered/Resolved]
  - Prescribed overdose [Unknown]
  - Fatigue [Recovered/Resolved]
  - Abnormal behaviour [Recovered/Resolved]
  - Logorrhoea [Recovered/Resolved]
  - Tachyphrenia [Recovered/Resolved]

NARRATIVE: CASE EVENT DATE: 2014
